FAERS Safety Report 24438500 (Version 1)
Quarter: 2024Q4

REPORT INFORMATION
  Report Type: Spontaneous
  Country: US (occurrence: None)
  Receive Date: 20241013
  Receipt Date: 20241013
  Transmission Date: 20250114
  Serious: No
  Sender: Public
  Company Number: None

PATIENT
  Age: 64 Year
  Sex: Female
  Weight: 54.9 kg

DRUGS (4)
  1. IMIQUIMOD [Suspect]
     Active Substance: IMIQUIMOD
     Indication: Actinic keratosis
     Dosage: OTHER QUANTITY : 1 PACKT;?OTHER FREQUENCY : 3 TIMES A WEEK;?
     Route: 061
     Dates: start: 20240212, end: 20240304
  2. FLUOXETINE [Concomitant]
     Active Substance: FLUOXETINE HYDROCHLORIDE
  3. FLUTICASONE [Concomitant]
     Active Substance: FLUTICASONE
  4. Opzelura Cream [Concomitant]

REACTIONS (1)
  - Vitiligo [None]

NARRATIVE: CASE EVENT DATE: 20240304
